FAERS Safety Report 6750530-2 (Version None)
Quarter: 2010Q2

REPORT INFORMATION
  Report Type: 
  Country: None (occurrence: None)
  Receive Date: 20100528
  Receipt Date: 20100528
  Transmission Date: 20101027
  Serious: Yes (Hospitalization)
  Sender: FDA-Public Use
  Company Number: None

PATIENT
  Age: 46 Year
  Sex: Male
  Weight: 66.4 kg

DRUGS (4)
  1. REPLAGAL (SHIRE HGT) [Suspect]
     Indication: FABRY'S DISEASE
     Dosage: LAST DOSE 14MG IV
     Route: 042
     Dates: start: 19980101
  2. CHANTIX [Concomitant]
  3. COUMADIN [Concomitant]
  4. ZYPREXA [Concomitant]

REACTIONS (9)
  - BLOOD POTASSIUM DECREASED [None]
  - COLONIC PSEUDO-OBSTRUCTION [None]
  - CONFUSIONAL STATE [None]
  - DEHYDRATION [None]
  - DYSPHAGIA [None]
  - GASTROINTESTINAL DISORDER [None]
  - PROTHROMBIN TIME PROLONGED [None]
  - TREMOR [None]
  - VOMITING [None]
